FAERS Safety Report 4433153-X (Version None)
Quarter: 2004Q3

REPORT INFORMATION
  Report Type: 
  Country: None (occurrence: None)
  Receive Date: 20040823
  Receipt Date: 20040806
  Transmission Date: 20050211
  Serious: Yes (Hospitalization)
  Sender: FDA-Public Use
  Company Number: 197139

PATIENT
  Age: 56 Year
  Sex: Female
  Weight: 72.5755 kg

DRUGS (9)
  1. AVONEX [Suspect]
     Indication: MULTIPLE SCLEROSIS
     Dosage: 30 MCG QW IM
     Route: 030
     Dates: start: 19980101, end: 20030101
  2. AVONEX [Suspect]
     Indication: MULTIPLE SCLEROSIS
     Dosage: 30 MCG QW IM
     Route: 030
     Dates: start: 20030101
  3. DIOVAN [Concomitant]
  4. ZETIA [Concomitant]
  5. BACLOFEN [Concomitant]
  6. MULTIVITAMIN [Concomitant]
  7. CALCIUM [Concomitant]
  8. ZINC [Concomitant]
  9. ACTONEL [Concomitant]

REACTIONS (18)
  - ANXIETY [None]
  - CEREBRAL ATROPHY [None]
  - CHOREOATHETOSIS [None]
  - DEPRESSION [None]
  - DIFFICULTY IN WALKING [None]
  - DYSARTHRIA [None]
  - DYSPHASIA [None]
  - FACIAL PALSY [None]
  - HEMIPARESIS [None]
  - HYPOAESTHESIA [None]
  - INCOHERENT [None]
  - INSOMNIA [None]
  - MUSCULAR WEAKNESS [None]
  - MYOTONIA [None]
  - PERIPHERAL NERVE PALSY [None]
  - POSTURING [None]
  - SENSORY DISTURBANCE [None]
  - TRANSIENT ISCHAEMIC ATTACK [None]
